FAERS Safety Report 6547519-5 (Version None)
Quarter: 2010Q1

REPORT INFORMATION
  Report Type: 
  Country: None (occurrence: None)
  Receive Date: 20100122
  Receipt Date: 20100113
  Transmission Date: 20100710
  Serious: Yes (Hospitalization, Other)
  Sender: FDA-Public Use
  Company Number: US-JNJFOC-20100106353

PATIENT
  Sex: Male
  Weight: 67.99 kg

DRUGS (17)
  1. DURAGESIC-100 [Suspect]
     Indication: PAIN
     Route: 062
  2. HYDROMORPHONE HCL [Suspect]
     Route: 048
  3. HYDROMORPHONE HCL [Suspect]
     Indication: PAIN
     Route: 048
  4. PREDNISONE [Suspect]
     Indication: PROSTATE CANCER
     Route: 048
  5. PALLADONE [Suspect]
     Indication: PAIN
     Route: 048
  6. SUNITINIB MALATE (SU-011,248) [Suspect]
     Indication: PROSTATE CANCER
     Route: 048
  7. HALDOL [Concomitant]
     Indication: NAUSEA
     Route: 065
  8. MOVICOL [Concomitant]
     Indication: CONSTIPATION
     Route: 065
  9. METAMIZOLE [Concomitant]
     Indication: PAIN
     Route: 065
  10. LYRICA [Concomitant]
     Indication: PAIN
     Route: 065
  11. OMEPRAZOLE [Concomitant]
     Indication: GASTRITIS
     Route: 065
  12. PAROXETINE HCL [Concomitant]
     Indication: DEPRESSION
     Route: 065
  13. METOCLOPRAMIDE HYDROCHLORIDE [Concomitant]
     Indication: NAUSEA
     Route: 065
  14. KEVATRIL [Concomitant]
     Indication: NAUSEA
     Route: 065
  15. TAVOR [Concomitant]
     Indication: INSOMNIA
     Route: 065
  16. FUROSEMID [Concomitant]
     Indication: OEDEMA
     Route: 065
  17. SCOPOLAMINE [Concomitant]
     Indication: PAIN
     Route: 065

REACTIONS (4)
  - BLOOD CREATININE INCREASED [None]
  - DEHYDRATION [None]
  - HYPONATRAEMIA [None]
  - NARCOTIC INTOXICATION [None]
